FAERS Safety Report 5243086-7 (Version None)
Quarter: 2007Q1

REPORT INFORMATION
  Report Type: 
  Country: None (occurrence: None)
  Receive Date: 20070221
  Receipt Date: 20070214
  Transmission Date: 20070707
  Serious: Yes (Death, Other)
  Sender: FDA-Public Use
  Company Number: DE-ROXANE LABORATORIES, INC-2007-BP-02222RO

PATIENT
  Age: 14 Year
  Sex: Female

DRUGS (4)
  1. METHOTREXATE [Suspect]
     Indication: CHEMOTHERAPY
     Route: 037
  2. METHOTREXATE [Suspect]
     Route: 042
  3. PREDNISONE 50MG TAB [Suspect]
     Indication: CHEMOTHERAPY
     Route: 037
  4. ARA-C [Suspect]
     Indication: CHEMOTHERAPY
     Route: 037

REACTIONS (14)
  - AREFLEXIA [None]
  - BLOOD ALBUMIN DECREASED [None]
  - BLOOD BRAIN BARRIER DEFECT [None]
  - BLOOD IMMUNOGLOBULIN A DECREASED [None]
  - BLOOD IMMUNOGLOBULIN M DECREASED [None]
  - BONE MARROW FAILURE [None]
  - DEMYELINATION [None]
  - GAIT DISTURBANCE [None]
  - HEPATIC ENZYME INCREASED [None]
  - MUSCULOSKELETAL DISCOMFORT [None]
  - OSTEONECROSIS [None]
  - PARAPLEGIA [None]
  - PROTEIN TOTAL DECREASED [None]
  - WHEELCHAIR USER [None]
